FAERS Safety Report 4362904-8 (Version None)
Quarter: 2004Q2

REPORT INFORMATION
  Report Type: 
  Country: None (occurrence: None)
  Receive Date: 20040517
  Receipt Date: 20040331
  Transmission Date: 20050107
  Serious: No
  Sender: FDA-Public Use
  Company Number: S04-USA-01899-01

PATIENT
  Age: 73 Year
  Sex: Female

DRUGS (8)
  1. NAMENDA [Suspect]
     Indication: DEMENTIA ALZHEIMER'S TYPE
     Dosage: 10 MG QD PO
     Route: 048
     Dates: start: 20040314, end: 20040320
  2. NAMENDA [Suspect]
     Dosage: 15 MG QD PO
     Route: 048
     Dates: start: 20040321, end: 20040327
  3. NAMENDA [Suspect]
     Dosage: 20 MG QD PO
     Route: 048
     Dates: start: 20040328
  4. NAMENDA [Suspect]
     Dosage: 5 MG QD PO
     Route: 048
     Dates: start: 20040307, end: 20040313
  5. RISPERDAL [Concomitant]
  6. CELEXA (CITALOPRAM HYDRBROMIDE) [Concomitant]
  7. ZIAC [Concomitant]
  8. PRILOSEC [Concomitant]

REACTIONS (2)
  - DEPRESSED LEVEL OF CONSCIOUSNESS [None]
  - LACK OF SPONTANEOUS SPEECH [None]
